FAERS Safety Report 25734450 (Version 1)
Quarter: 2025Q3

REPORT INFORMATION
  Report Type: Other
  Country: US (occurrence: US)
  Receive Date: 20250828
  Receipt Date: 20250828
  Transmission Date: 20251020
  Serious: Yes (Death, Hospitalization)
  Sender: BRECKENRIDGE PHARMACEUTICAL, INC.
  Company Number: US-Breckenridge Pharmaceutical, Inc.-2183380

PATIENT
  Age: 63 Year
  Sex: Male

DRUGS (3)
  1. APIXABAN [Suspect]
     Active Substance: APIXABAN
     Indication: Atrial fibrillation
  2. DIOVAN [Concomitant]
     Active Substance: VALSARTAN
  3. DILTIAZEM [Concomitant]
     Active Substance: DILTIAZEM

REACTIONS (7)
  - Haematoma [Fatal]
  - Lactic acidosis [Not Recovered/Not Resolved]
  - Hypoxia [Fatal]
  - Respiratory failure [Fatal]
  - Acute kidney injury [Not Recovered/Not Resolved]
  - Cardiac arrest [Fatal]
  - Multiple organ dysfunction syndrome [Fatal]
